FAERS Safety Report 23195973 (Version 2)
Quarter: 2023Q4

REPORT INFORMATION
  Report Type: Report from Study
  Country: US (occurrence: US)
  Receive Date: 20231117
  Receipt Date: 20231215
  Transmission Date: 20240110
  Serious: Yes (Other)
  Sender: FDA-Public Use
  Company Number: US-002147023-NVSC2023US241126

PATIENT
  Age: 68 Year
  Sex: Female

DRUGS (5)
  1. ENTRESTO [Suspect]
     Active Substance: SACUBITRIL\VALSARTAN
     Indication: Cardiac failure
     Dosage: 1 DOSAGE FORM, BID
     Route: 048
     Dates: start: 202308
  2. ENTRESTO [Suspect]
     Active Substance: SACUBITRIL\VALSARTAN
     Dosage: 0.5 DOSAGE FORM, BID
     Route: 048
  3. NITROGLYCERIN [Suspect]
     Active Substance: NITROGLYCERIN
     Indication: Chest pain
     Dosage: UNK UNK, PRN
     Route: 060
     Dates: start: 2023
  4. POTASSIUM [Suspect]
     Active Substance: POTASSIUM
     Indication: Blood potassium decreased
     Dosage: UNK
     Route: 065
  5. DOXYCYCLINE [Concomitant]
     Active Substance: DOXYCYCLINE
     Indication: Breast cellulitis
     Dosage: UNK
     Route: 065

REACTIONS (24)
  - Chest pain [Recovered/Resolved]
  - Chest pain [Not Recovered/Not Resolved]
  - Barrett^s oesophagus [Unknown]
  - Sinusitis [Unknown]
  - Pyrexia [Unknown]
  - Asthenia [Unknown]
  - Hyperhidrosis [Unknown]
  - Fatigue [Unknown]
  - Back pain [Unknown]
  - Implant site infection [Not Recovered/Not Resolved]
  - Palpitations [Recovered/Resolved]
  - Neutrophil count increased [Not Recovered/Not Resolved]
  - Blood pressure increased [Recovered/Resolved]
  - Fungal infection [Unknown]
  - Chest discomfort [Unknown]
  - Oesophageal spasm [Unknown]
  - Weight fluctuation [Not Recovered/Not Resolved]
  - Fluid retention [Unknown]
  - Thirst [Unknown]
  - Blood immunoglobulin G increased [Unknown]
  - Blood potassium decreased [Recovered/Resolved]
  - Nausea [Unknown]
  - Dizziness [Unknown]
  - Wrong technique in product usage process [Unknown]

NARRATIVE: CASE EVENT DATE: 20230801
